FAERS Safety Report 20719886 (Version 1)
Quarter: 2022Q2

REPORT INFORMATION
  Report Type: Spontaneous
  Country: US (occurrence: US)
  Receive Date: 20220418
  Receipt Date: 20220418
  Transmission Date: 20220721
  Serious: Yes (Other)
  Sender: FDA-Public Use
  Company Number: US-PFIZER INC-2018519104

PATIENT
  Age: 78 Year
  Sex: Female
  Weight: 57.15 kg

DRUGS (1)
  1. PREMARIN [Suspect]
     Active Substance: ESTROGENS, CONJUGATED
     Dosage: 0.5 G, (EVERY MON, WED, AND FRI AT H.S/THREE TIMES A WEEK)
     Route: 067

REACTIONS (3)
  - Hip surgery [Unknown]
  - Off label use [Unknown]
  - Product use issue [Unknown]
